FAERS Safety Report 8237428-8 (Version None)
Quarter: 2012Q1

REPORT INFORMATION
  Report Type: 
  Country: None (occurrence: None)
  Receive Date: 20120327
  Receipt Date: 20120319
  Transmission Date: 20120608
  Serious: Yes (Hospitalization, Other)
  Sender: FDA-Public Use
  Company Number: US-BAYER-201033443NA

PATIENT
  Age: 48 Year
  Sex: Female
  Weight: 70.295 kg

DRUGS (3)
  1. FLOVENT [Concomitant]
     Indication: ASTHMA
  2. YASMIN [Suspect]
     Indication: ORAL CONTRACEPTION
     Dosage: UNK UNK, UNK
     Route: 048
     Dates: start: 20071105, end: 20090101
  3. ALBUTEROL [Concomitant]
     Indication: ASTHMA

REACTIONS (9)
  - THROMBOSIS [None]
  - MENTAL DISORDER [None]
  - CHOLECYSTECTOMY [None]
  - SCAR [None]
  - ANXIETY [None]
  - DEPRESSION [None]
  - PHLEBITIS SUPERFICIAL [None]
  - OEDEMA PERIPHERAL [None]
  - CHOLECYSTITIS CHRONIC [None]
